FAERS Safety Report 15732446 (Version 1)
Quarter: 2018Q4

REPORT INFORMATION
  Report Type: Spontaneous
  Country: US (occurrence: US)
  Receive Date: 20181217
  Receipt Date: 20181217
  Transmission Date: 20190205
  Serious: No
  Sender: FDA-Public Use
  Company Number: US-NOVOPROD-635414

PATIENT
  Age: 42 Year
  Sex: Female

DRUGS (3)
  1. OZEMPIC [Suspect]
     Active Substance: SEMAGLUTIDE
     Indication: WEIGHT DECREASED
  2. OZEMPIC [Suspect]
     Active Substance: SEMAGLUTIDE
     Indication: INSULIN RESISTANCE
     Dosage: 0.5 MG, UNK
     Route: 058
     Dates: end: 201811
  3. OZEMPIC [Suspect]
     Active Substance: SEMAGLUTIDE
     Indication: PANCREATIC DISORDER
     Dosage: 1 MG, QW
     Route: 058
     Dates: start: 20181115, end: 20181122

REACTIONS (4)
  - Muscle spasms [Not Recovered/Not Resolved]
  - Off label use [Not Recovered/Not Resolved]
  - Diarrhoea [Not Recovered/Not Resolved]
  - Nausea [Not Recovered/Not Resolved]

NARRATIVE: CASE EVENT DATE: 20181115
